FAERS Safety Report 8417292-4 (Version None)
Quarter: 2012Q2

REPORT INFORMATION
  Report Type: 
  Country: None (occurrence: None)
  Receive Date: 20120606
  Receipt Date: 20120522
  Transmission Date: 20120825
  Serious: No
  Sender: FDA-Public Use
  Company Number: US-ASTRAZENECA-2012SE32929

PATIENT
  Age: 64 Year
  Sex: Male
  Weight: 99.8 kg

DRUGS (5)
  1. SEROQUEL XR [Suspect]
     Route: 048
  2. SEROQUEL XR [Suspect]
     Route: 048
     Dates: end: 20111101
  3. LAMOTRIGINE [Concomitant]
     Indication: DEPRESSION
  4. CITALOPRAM HYDROBROMIDE [Concomitant]
     Indication: DEPRESSION
  5. SEROQUEL XR [Suspect]
     Indication: MAJOR DEPRESSION
     Route: 048

REACTIONS (3)
  - DRUG INTOLERANCE [None]
  - HYPERSOMNIA [None]
  - SOMNOLENCE [None]
